FAERS Safety Report 4960417-3 (Version None)
Quarter: 2006Q2

REPORT INFORMATION
  Report Type: 
  Country: None (occurrence: None)
  Receive Date: 20060403
  Receipt Date: 20060327
  Transmission Date: 20061013
  Serious: Yes (Death, Life-Threatening)
  Sender: FDA-Public Use
  Company Number: FR-AVENTIS-200611131FR

PATIENT
  Age: 61 Year
  Sex: Female

DRUGS (7)
  1. TAXOTERE [Suspect]
     Indication: BREAST CANCER METASTATIC
     Route: 042
     Dates: start: 20060306, end: 20060306
  2. XELODA [Suspect]
     Indication: BREAST CANCER METASTATIC
     Route: 048
     Dates: start: 20060306, end: 20060315
  3. PHYSIOTENS [Concomitant]
  4. COVERSYL [Concomitant]
  5. ALDACTONE [Concomitant]
  6. DIAMICRON [Concomitant]
  7. GLUCOPHAGE [Concomitant]

REACTIONS (3)
  - CARDIAC ARREST [None]
  - DIABETES MELLITUS NON-INSULIN-DEPENDENT [None]
  - SUDDEN DEATH [None]
